FAERS Safety Report 6616966-5 (Version None)
Quarter: 2010Q1

REPORT INFORMATION
  Report Type: 
  Country: None (occurrence: None)
  Receive Date: 20100302
  Receipt Date: 20100223
  Transmission Date: 20100710
  Serious: Yes (Death, Hospitalization)
  Sender: FDA-Public Use
  Company Number: 230018M03FRA

PATIENT
  Age: 49 Year
  Sex: Female

DRUGS (13)
  1. REBIF [Suspect]
     Indication: MULTIPLE SCLEROSIS
     Dosage: 44 MCG, 3 IN 1 WEEKS, SUBCUTANEOUS
     Route: 058
     Dates: start: 20001113, end: 20021202
  2. NOVANTRONE [Suspect]
     Indication: MULTIPLE SCLEROSIS
     Dosage: 120 MG, INTRAVENOUS
     Route: 042
     Dates: start: 20000302, end: 20000930
  3. ANETHOLE TRITHIONE [Concomitant]
  4. AMLODIPINE BESYLATE [Concomitant]
  5. INTERFERON BETA-1A [Concomitant]
  6. OXYBUTYNIN [Concomitant]
  7. BACLOFEN [Concomitant]
  8. TOCOPHERYL ACETATE [Concomitant]
  9. NAFTIDROFURYL ACETATE [Concomitant]
  10. CLONAZEPAM [Concomitant]
  11. FLUOXETINE HYDROCHLORIDE [Concomitant]
  12. ZOLPIDEM [Concomitant]
  13. INTERFERON BETA-1B [Concomitant]

REACTIONS (4)
  - ACUTE PROMYELOCYTIC LEUKAEMIA [None]
  - ALTERED STATE OF CONSCIOUSNESS [None]
  - DEHYDRATION [None]
  - INFECTION [None]
